FAERS Safety Report 9917809 (Version 2)
Quarter: 2014Q1

REPORT INFORMATION
  Report Type: Spontaneous
  Country: CA (occurrence: CA)
  Receive Date: 20140221
  Receipt Date: 20140307
  Transmission Date: 20141002
  Serious: Yes (Hospitalization, Other)
  Sender: FDA-Public Use
  Company Number: CA-ABBVIE-14P-028-1202832-00

PATIENT
  Age: 63 Year
  Sex: Male
  Weight: 63 kg

DRUGS (15)
  1. NORVIR [Suspect]
     Indication: HIV INFECTION
  2. ADVAIR [Interacting]
     Indication: CHRONIC OBSTRUCTIVE PULMONARY DISEASE
     Dosage: UNIT DOSE:125/25 MCGDAILY DOSE:250/50MCG
     Route: 055
  3. ADVAIR [Interacting]
     Dosage: UNIT DOSE: 500/50 MCGDAILY DOSE: 1000/100 MCG
     Route: 055
  4. BETAMETHASONE VALERATE [Suspect]
     Indication: PRURITUS
     Dosage: BID AS NEEDED
  5. BETAMETHASONE VALERATE [Suspect]
     Indication: FUNGAL INFECTION
  6. HYDROCHLOROTHIAZIDE [Concomitant]
     Indication: HYPERTENSION
  7. RALTEGRAVIR [Concomitant]
     Indication: HIV INFECTION
  8. ETRAVIRINE [Concomitant]
     Indication: HIV INFECTION
  9. DARUNAVIR [Concomitant]
     Indication: HIV INFECTION
  10. SALBUTAMOL [Concomitant]
     Indication: CHRONIC OBSTRUCTIVE PULMONARY DISEASE
     Dosage: EVERY 4 HOURS AS NEEDED
     Route: 055
  11. TIOTROPIUM [Concomitant]
     Indication: CHRONIC OBSTRUCTIVE PULMONARY DISEASE
  12. RABEPRAZOLE [Concomitant]
     Indication: DYSPEPSIA
  13. CLOTRIMAZOLE [Concomitant]
     Indication: PRURITUS
     Dosage: BID AS NEEDED
  14. CLOTRIMAZOLE [Concomitant]
     Indication: FUNGAL INFECTION
  15. PERINDOPRIL [Concomitant]
     Indication: HYPERTENSION

REACTIONS (28)
  - Renal failure [Unknown]
  - Cushing^s syndrome [Recovering/Resolving]
  - General physical health deterioration [Recovering/Resolving]
  - Mobility decreased [Unknown]
  - Fatigue [Unknown]
  - Orthostatic hypotension [Unknown]
  - Weight increased [Recovering/Resolving]
  - Polyuria [Unknown]
  - Polydipsia [Unknown]
  - Hyperphagia [Unknown]
  - Cushingoid [Unknown]
  - Lipohypertrophy [Unknown]
  - Acanthosis nigricans [Unknown]
  - Blood pressure systolic increased [Unknown]
  - Blood creatinine increased [Unknown]
  - Syncope [Unknown]
  - Dehydration [Unknown]
  - Blood glucose increased [Unknown]
  - Glycosylated haemoglobin increased [Unknown]
  - Diabetes mellitus [Unknown]
  - Lipids abnormal [Unknown]
  - Blood triglycerides increased [Unknown]
  - Metabolic syndrome [Unknown]
  - Pathogen resistance [Unknown]
  - Asthenia [Unknown]
  - Fungal infection [Unknown]
  - Pruritus [Unknown]
  - Drug interaction [Unknown]
